FAERS Safety Report 16958566 (Version 1)
Quarter: 2019Q4

REPORT INFORMATION
  Report Type: Spontaneous
  Country: CA (occurrence: CA)
  Receive Date: 20191024
  Receipt Date: 20191024
  Transmission Date: 20200122
  Serious: Yes (Hospitalization)
  Sender: FDA-Public Use
  Company Number: CA-TEVA-2019-CA-1126221

PATIENT
  Age: 74 Year
  Sex: Female
  Weight: 86 kg

DRUGS (2)
  1. DOCETAXEL. [Suspect]
     Active Substance: DOCETAXEL
     Indication: BREAST CANCER
     Route: 042
  2. MULTIVITAMINE(S) [Concomitant]
     Active Substance: VITAMINS

REACTIONS (6)
  - Skin exfoliation [Recovered/Resolved]
  - Neuropathy peripheral [Recovered/Resolved]
  - Pain in extremity [Recovered/Resolved]
  - Erythema [Recovered/Resolved]
  - Febrile neutropenia [Recovered/Resolved]
  - Peripheral swelling [Recovered/Resolved]
